FAERS Safety Report 16362962 (Version 1)
Quarter: 2019Q2

REPORT INFORMATION
  Report Type: Spontaneous
  Country: GB (occurrence: GB)
  Receive Date: 20190528
  Receipt Date: 20190528
  Transmission Date: 20190711
  Serious: Yes (Other)
  Sender: FDA-Public Use
  Company Number: GB-JNJFOC-20190530783

PATIENT
  Sex: Female

DRUGS (1)
  1. ACETAMINOPHEN AND CODEINE [Suspect]
     Active Substance: ACETAMINOPHEN\CODEINE PHOSPHATE
     Indication: PRODUCT USED FOR UNKNOWN INDICATION
     Dosage: 8/500 MG
     Route: 048
     Dates: end: 20180309

REACTIONS (6)
  - Eye swelling [Unknown]
  - Reaction to excipient [Unknown]
  - Ear swelling [Unknown]
  - Dyspnoea [Unknown]
  - Seizure [Unknown]
  - Swelling face [Unknown]
